FAERS Safety Report 5032686-5 (Version None)
Quarter: 2006Q2

REPORT INFORMATION
  Report Type: 
  Country: None (occurrence: None)
  Receive Date: 20060515
  Receipt Date: 20060130
  Transmission Date: 20061013
  Serious: No
  Sender: FDA-Public Use
  Company Number: S06-USA-00365-01

PATIENT
  Sex: Male

DRUGS (2)
  1. NAMENDA [Suspect]
  2. EXELON [Concomitant]

REACTIONS (1)
  - WEIGHT DECREASED [None]
